FAERS Safety Report 19795027 (Version 1)
Quarter: 2021Q3

REPORT INFORMATION
  Report Type: Report from Study
  Country: JP (occurrence: JP)
  Receive Date: 20210907
  Receipt Date: 20210907
  Transmission Date: 20211014
  Serious: Yes (Other)
  Sender: FDA-Public Use
  Company Number: JP-TEVA-2021-JP-1949959

PATIENT
  Age: 38 Year
  Sex: Male
  Weight: 52 kg

DRUGS (2)
  1. CLINDAMYCIN. [Suspect]
     Active Substance: CLINDAMYCIN
     Indication: PNEUMOCYSTIS JIROVECII PNEUMONIA
     Dosage: 1800 MILLIGRAM DAILY;
     Route: 065
  2. PRIMAQUINE PHOSPHATE. [Suspect]
     Active Substance: PRIMAQUINE PHOSPHATE
     Indication: PNEUMOCYSTIS JIROVECII PNEUMONIA
     Dosage: 30 MILLIGRAM DAILY;
     Route: 065

REACTIONS (2)
  - Methaemoglobinaemia [Unknown]
  - Off label use [Unknown]
